FAERS Safety Report 7693012-6 (Version None)
Quarter: 2011Q3

REPORT INFORMATION
  Report Type: 
  Country: None (occurrence: None)
  Receive Date: 20110819
  Receipt Date: 20020123
  Transmission Date: 20111222
  Serious: No
  Sender: FDA-Public Use
  Company Number: US-BRISTOL-MYERS SQUIBB COMPANY-11683463

PATIENT
  Age: 40 Year
  Sex: Female
  Weight: 97 kg

DRUGS (7)
  1. STADOL [Suspect]
     Indication: PAIN
     Dosage: RECEIVED AFTER DELIVERY OF EACH CHILD IN 1979, 1987, AND 1990
     Route: 030
  2. INDOMETHACIN [Concomitant]
  3. HYDROCHLOROTHIAZIDE [Concomitant]
  4. FLONASE [Concomitant]
  5. VIOXX [Concomitant]
     Dosage: ^ON AND OFF^
  6. ACCUPRIL [Concomitant]
  7. CLARITIN [Concomitant]

REACTIONS (3)
  - CONDITION AGGRAVATED [None]
  - BACK PAIN [None]
  - MUSCLE SPASMS [None]
